FAERS Safety Report 19379841 (Version 1)
Quarter: 2021Q2

REPORT INFORMATION
  Report Type: Spontaneous
  Country: US (occurrence: US)
  Receive Date: 20210607
  Receipt Date: 20210607
  Transmission Date: 20210717
  Serious: No
  Sender: FDA-Public Use
  Company Number: US-TEVA-2021-US-1916845

PATIENT
  Sex: Male

DRUGS (18)
  1. IPRATROPIUM BROMIDE. [Concomitant]
     Active Substance: IPRATROPIUM BROMIDE
     Dosage: 0.03%
  2. BENZONATATE. [Concomitant]
     Active Substance: BENZONATATE
     Route: 048
  3. SERTRALINE HCL [Concomitant]
     Active Substance: SERTRALINE HYDROCHLORIDE
     Route: 048
  4. TYLENOL [Concomitant]
     Active Substance: ACETAMINOPHEN
     Route: 048
  5. MULTIVITAMIN [Concomitant]
     Active Substance: VITAMINS
     Route: 048
  6. CALMOSEPTINE [Concomitant]
     Active Substance: MENTHOL\ZINC OXIDE
     Dosage: 0.44?20.6%
  7. KETOCONAZOLE. [Concomitant]
     Active Substance: KETOCONAZOLE
  8. PRIMIDONE. [Concomitant]
     Active Substance: PRIMIDONE
     Route: 048
  9. VITAMIN D3 [Concomitant]
     Active Substance: CHOLECALCIFEROL
     Route: 048
  10. TRIAMCINOLONE ACETONIDE. [Concomitant]
     Active Substance: TRIAMCINOLONE ACETONIDE
     Dosage: EXTERNAL CREAM 01%
  11. LANTUS SOLOSTAR [Concomitant]
     Active Substance: INSULIN GLARGINE
     Dosage: SUBCUTANEOUS SOLUTION PEN ?INJECTOR 100 UNIT /ML
  12. MIRALAX [Concomitant]
     Active Substance: POLYETHYLENE GLYCOL 3350
     Route: 048
  13. DOXEPIN HCL [Concomitant]
     Active Substance: DOXEPIN HYDROCHLORIDE
     Route: 048
  14. LIPITOR [Concomitant]
     Active Substance: ATORVASTATIN CALCIUM
     Route: 048
  15. SENOKOT [Concomitant]
     Active Substance: SENNOSIDES
     Route: 048
  16. RISPERIDONE. [Concomitant]
     Active Substance: RISPERIDONE
     Route: 048
  17. AUSTEDO [Suspect]
     Active Substance: DEUTETRABENAZINE
     Indication: TARDIVE DYSKINESIA
     Dosage: 12 MILLIGRAM DAILY;
  18. DOXYCYCLINE HYCLATE. [Concomitant]
     Active Substance: DOXYCYCLINE HYCLATE
     Route: 048

REACTIONS (4)
  - Fall [Unknown]
  - Movement disorder [Unknown]
  - Listless [Unknown]
  - Balance disorder [Unknown]
